FAERS Safety Report 9477812 (Version 1)
Quarter: 2013Q3

REPORT INFORMATION
  Report Type: Spontaneous
  Country: US (occurrence: None)
  Receive Date: 20130826
  Receipt Date: 20130826
  Transmission Date: 20140515
  Serious: Yes (Hospitalization)
  Sender: FDA-Public Use
  Company Number: None

PATIENT
  Age: 64 Year
  Sex: Male
  Weight: 91.5 kg

DRUGS (2)
  1. CYTARABINE [Suspect]
     Dates: end: 20130812
  2. DAUNORUBICIN [Suspect]
     Dates: start: 20130808

REACTIONS (4)
  - Chest pain [None]
  - Pneumonia [None]
  - Platelet count decreased [None]
  - Haemoglobin decreased [None]
